FAERS Safety Report 4432914-0 (Version None)
Quarter: 2004Q3

REPORT INFORMATION
  Report Type: 
  Country: None (occurrence: None)
  Receive Date: 20040823
  Receipt Date: 20040805
  Transmission Date: 20050211
  Serious: Yes (Other)
  Sender: FDA-Public Use
  Company Number: CA-2004-028448

PATIENT
  Age: 40 Year
  Sex: Female

DRUGS (16)
  1. BETASERON [Suspect]
     Indication: MULTIPLE SCLEROSIS
     Dosage: 8 MIU, EVERY 2D, NEW AUTOINJECTOR, SUBCUTANEOUS
     Route: 058
     Dates: start: 19960101
  2. EFFEXOR XR [Concomitant]
  3. ATACAND PLUS (CANDESARTAN CILEXETIL) [Concomitant]
  4. LOSEC (OMEPRAZOLE) [Concomitant]
  5. LIPITOR [Concomitant]
  6. ATENOLOL [Concomitant]
  7. ZANAFLEX [Concomitant]
  8. ZOLOFT [Concomitant]
  9. LIVOSTIN [Concomitant]
  10. ALLEGRA [Concomitant]
  11. BECONASE [Concomitant]
  12. DETROL [Concomitant]
  13. NORFLOXACIN [Concomitant]
  14. TRYPTAN (TRYPTOPHAN-L) [Concomitant]
  15. TYLENOL [Concomitant]
  16. MACRODANTIN [Concomitant]

REACTIONS (2)
  - HEPATIC ENZYME INCREASED [None]
  - PRURITUS GENERALISED [None]
